FAERS Safety Report 7138857-6 (Version None)
Quarter: 2010Q4

REPORT INFORMATION
  Report Type: 
  Country: None (occurrence: None)
  Receive Date: 20101206
  Receipt Date: 20101129
  Transmission Date: 20110411
  Serious: Yes (Hospitalization)
  Sender: FDA-Public Use
  Company Number: IL-BRISTOL-MYERS SQUIBB COMPANY-15415581

PATIENT
  Age: 51 Year
  Sex: Male

DRUGS (6)
  1. BLINDED: SAXAGLIPTIN [Suspect]
     Indication: TYPE 2 DIABETES MELLITUS
     Dosage: LAST DOSE ON 24NOV10
     Dates: start: 20101123, end: 20101125
  2. METFORMIN HCL [Suspect]
     Dosage: CONTINUING
  3. GLIMEPIRIDE [Suspect]
     Dosage: CONTINUING
  4. LANTUS [Suspect]
  5. BLINDED: PLACEBO [Suspect]
  6. ASPIRIN [Concomitant]
     Dosage: 1 DF=}100MG
     Dates: start: 20101123

REACTIONS (1)
  - PANCREATITIS ACUTE [None]
